FAERS Safety Report 9611210 (Version 5)
Quarter: 2014Q1

REPORT INFORMATION
  Report Type: Report from Study
  Country: BE (occurrence: BE)
  Receive Date: 20131009
  Receipt Date: 20140108
  Transmission Date: 20141002
  Serious: Yes (Other)
  Sender: FDA-Public Use
  Company Number: BE-ROCHE-1178021

PATIENT
  Age: 65 Year
  Sex: Female

DRUGS (24)
  1. PERTUZUMAB [Suspect]
     Indication: BREAST CANCER METASTATIC
     Route: 042
     Dates: start: 20120706, end: 20120706
  2. PERTUZUMAB [Suspect]
     Route: 042
     Dates: end: 20130225
  3. TRASTUZUMAB [Suspect]
     Indication: BREAST CANCER METASTATIC
     Route: 042
     Dates: start: 20120707, end: 20120707
  4. TRASTUZUMAB [Suspect]
     Route: 042
     Dates: end: 20130225
  5. PACLITAXEL [Suspect]
     Indication: BREAST CANCER METASTATIC
     Route: 042
     Dates: start: 20120706
  6. ZOLPIDEM [Concomitant]
     Route: 065
     Dates: start: 201003
  7. ALPRAZOLAM [Concomitant]
     Route: 065
     Dates: start: 201202
  8. LOPERAMIDE [Concomitant]
     Route: 065
     Dates: start: 20120711
  9. HEXTRIL [Concomitant]
     Route: 048
     Dates: start: 20120720, end: 20120723
  10. HEXTRIL [Concomitant]
     Route: 048
     Dates: start: 20121117, end: 20121119
  11. PARACETAMOL [Concomitant]
     Route: 065
     Dates: start: 20120607
  12. SYSTANE BALANCE [Concomitant]
     Route: 065
     Dates: start: 201107
  13. LEVOCETIRIZINE [Concomitant]
     Indication: PROPHYLAXIS
     Route: 065
     Dates: start: 20120706
  14. DEXAMETHASONE [Concomitant]
     Indication: PROPHYLAXIS
     Route: 065
     Dates: start: 20120706
  15. ZOLEDRONATE [Concomitant]
     Indication: METASTASES TO BONE
     Route: 065
     Dates: start: 20120213
  16. RANITIDINE [Concomitant]
     Indication: PROPHYLAXIS
     Route: 065
     Dates: start: 20120706
  17. LITICAN [Concomitant]
     Indication: PROPHYLAXIS OF NAUSEA AND VOMITING
     Route: 065
     Dates: start: 20120706
  18. LITICAN [Concomitant]
     Dosage: DOSE= 6 AMPS/24HRS
     Route: 065
     Dates: start: 20130225
  19. LITICAN [Concomitant]
     Route: 065
     Dates: start: 20130218, end: 20130225
  20. BEFACT FORTE [Concomitant]
     Route: 065
     Dates: start: 20120814
  21. MEDICA [Concomitant]
     Route: 065
     Dates: start: 20121119, end: 20121126
  22. MOTILIUM (BELGIUM) [Concomitant]
     Route: 065
     Dates: start: 20130216, end: 20130225
  23. PRIMPERAN (BELGIUM) [Concomitant]
     Route: 065
     Dates: start: 20130217, end: 20130225
  24. POTASSIUM CHLORIDE [Concomitant]
     Route: 065
     Dates: start: 20130225, end: 20130228

REACTIONS (1)
  - Left ventricular dysfunction [Recovered/Resolved]
